FAERS Safety Report 17088231 (Version 1)
Quarter: 2019Q4

REPORT INFORMATION
  Report Type: Spontaneous
  Country: US (occurrence: US)
  Receive Date: 20191128
  Receipt Date: 20191128
  Transmission Date: 20200122
  Serious: No
  Sender: FDA-Public Use
  Company Number: US-CELGENEUS-USA-20191108999

PATIENT
  Sex: Female

DRUGS (2)
  1. APREMILAST [Suspect]
     Active Substance: APREMILAST
     Dosage: HIGHER DOSE (UNSPECIFIED)
     Route: 048
     Dates: start: 201911
  2. APREMILAST [Suspect]
     Active Substance: APREMILAST
     Indication: PSORIASIS
     Dosage: 20 MILLIGRAM
     Route: 048
     Dates: start: 20191118

REACTIONS (1)
  - Nausea [Not Recovered/Not Resolved]

NARRATIVE: CASE EVENT DATE: 201911
